FAERS Safety Report 13699632 (Version 1)
Quarter: 2017Q2

REPORT INFORMATION
  Report Type: Spontaneous
  Country: US (occurrence: US)
  Receive Date: 20170629
  Receipt Date: 20170629
  Transmission Date: 20170830
  Serious: No
  Sender: FDA-Public Use
  Company Number: US-TEVA-746281ACC

PATIENT
  Sex: Female

DRUGS (18)
  1. BACLOFEN. [Concomitant]
     Active Substance: BACLOFEN
  2. GINGER. [Concomitant]
     Active Substance: GINGER
  3. CALCIUM [Concomitant]
     Active Substance: CALCIUM
  4. PROBIOTIC [Concomitant]
     Active Substance: PROBIOTICS NOS
  5. GARLIC. [Concomitant]
     Active Substance: GARLIC
  6. VITAMIN C [Concomitant]
     Active Substance: ASCORBIC ACID
  7. VITAMIN D [Concomitant]
     Active Substance: CHOLECALCIFEROL
  8. ZANAFLEX [Concomitant]
     Active Substance: TIZANIDINE HYDROCHLORIDE
  9. IRON [Concomitant]
     Active Substance: IRON
  10. FISH OIL [Concomitant]
     Active Substance: FISH OIL
  11. POTASSIUM [Concomitant]
     Active Substance: POTASSIUM
  12. OMEGA 3 [Concomitant]
     Active Substance: OMEGA-3 FATTY ACIDS
  13. TRAMADOL. [Concomitant]
     Active Substance: TRAMADOL
  14. COPAXONE [Suspect]
     Active Substance: GLATIRAMER ACETATE
     Indication: MULTIPLE SCLEROSIS
     Dosage: PEN
     Route: 058
     Dates: start: 20160319
  15. VALIUM [Concomitant]
     Active Substance: DIAZEPAM
  16. ASPIRIN. [Concomitant]
     Active Substance: ASPIRIN
  17. MAGNESIUM [Concomitant]
     Active Substance: MAGNESIUM
  18. LEVOTHYROXIN [Concomitant]
     Active Substance: LEVOTHYROXINE

REACTIONS (1)
  - Injection site reaction [Not Recovered/Not Resolved]
